FAERS Safety Report 11874271 (Version 2)
Quarter: 2017Q3

REPORT INFORMATION
  Report Type: Spontaneous
  Country: IN (occurrence: IN)
  Receive Date: 20151229
  Receipt Date: 20170728
  Transmission Date: 20171127
  Serious: Yes (Other)
  Sender: FDA-Public Use
  Company Number: IN-SUN PHARMACEUTICAL INDUSTRIES LTD-2015R1-108413

PATIENT
  Age: 6 Year
  Sex: Male

DRUGS (1)
  1. DOXORUBICIN [Suspect]
     Active Substance: DOXORUBICIN
     Indication: RETINOBLASTOMA
     Dosage: UNK
     Route: 065
     Dates: start: 2012

REACTIONS (1)
  - B precursor type acute leukaemia [Unknown]

NARRATIVE: CASE EVENT DATE: 201402
